FAERS Safety Report 5499907-6 (Version None)
Quarter: 2007Q4

REPORT INFORMATION
  Report Type: 
  Country: None (occurrence: None)
  Receive Date: 20071026
  Receipt Date: 20071015
  Transmission Date: 20080405
  Serious: Yes (Other)
  Sender: FDA-Public Use
  Company Number: US-PFIZER INC-2007087365

PATIENT
  Sex: Female
  Weight: 76.818 kg

DRUGS (7)
  1. CHANTIX [Suspect]
     Indication: EX-SMOKER
     Dates: start: 20070701, end: 20070701
  2. CELEBREX [Concomitant]
  3. ZYRTEC [Concomitant]
  4. MIRAPEX [Concomitant]
  5. OMEPRAZOLE [Concomitant]
  6. PROPRANOLOL [Concomitant]
  7. TAMOXIFEN CITRATE [Concomitant]

REACTIONS (2)
  - HEADACHE [None]
  - MALIGNANT BREAST LUMP REMOVAL [None]
